FAERS Safety Report 18167892 (Version 1)
Quarter: 2020Q3

REPORT INFORMATION
  Report Type: Spontaneous
  Country: DE (occurrence: DE)
  Receive Date: 20200819
  Receipt Date: 20200819
  Transmission Date: 20201104
  Serious: Yes (Hospitalization)
  Sender: FDA-Public Use
  Company Number: DE-TEVA-2020-DE-1815693

PATIENT
  Age: 83 Year
  Sex: Female

DRUGS (9)
  1. ETORICOXIB. [Suspect]
     Active Substance: ETORICOXIB
     Indication: ARTHRALGIA
     Dosage: 60 MG
     Route: 065
  2. METFORMIN [Concomitant]
     Active Substance: METFORMIN HYDROCHLORIDE
     Dosage: 850 MILLIGRAM DAILY; 0?1?0?0
  3. CARVEDILOL. [Concomitant]
     Active Substance: CARVEDILOL
     Dosage: 12.5 MG, 0.5?0?1?0
  4. CLOPIDOGREL [Suspect]
     Active Substance: CLOPIDOGREL BISULFATE
     Dosage: 75 MILLIGRAM DAILY; 75 MG, 1?0?0?0
  5. BETAHISTIN [Concomitant]
     Active Substance: BETAHISTINE
     Dosage: 12 MILLIGRAM DAILY; 12 MG, 0?0?0?1
  6. ATORVASTATIN/EZETIMIB [Concomitant]
     Dosage: 1 DOSAGE FORMS DAILY; 40|10 MG, 0?0?1?0
  7. TORASEMID [Concomitant]
     Active Substance: TORSEMIDE
     Dosage: 5 MILLIGRAM DAILY; 1?0?0?0
  8. MIRTAZAPIN [Concomitant]
     Active Substance: MIRTAZAPINE
     Dosage: .5 DOSAGE FORMS DAILY; 15 MG, 0?0?0?0.5
  9. FELODIPIN/RAMIPRIL [Concomitant]
     Dosage: 1 DOSAGE FORMS DAILY; 5|5 MG, 1?0?0?0

REACTIONS (1)
  - Haematochezia [Unknown]

NARRATIVE: CASE EVENT DATE: 20200707
